FAERS Safety Report 5753035-0 (Version None)
Quarter: 2008Q2

REPORT INFORMATION
  Report Type: 
  Country: None (occurrence: None)
  Receive Date: 20080527
  Receipt Date: 20080505
  Transmission Date: 20081010
  Serious: Yes (Life-Threatening, Hospitalization, Other)
  Sender: FDA-Public Use
  Company Number: 100#08#2008-02621

PATIENT
  Age: 69 Year
  Sex: Female

DRUGS (2)
  1. LITHIUM CARBONATE [Suspect]
     Indication: BIPOLAR I DISORDER
     Dosage: 750 MG
  2. INDOMETHACIN [Suspect]
     Indication: DRUG USE FOR UNKNOWN INDICATION

REACTIONS (16)
  - ANAEMIA HAEMOLYTIC AUTOIMMUNE [None]
  - AZOTAEMIA [None]
  - BLOOD POTASSIUM INCREASED [None]
  - BLOOD SODIUM DECREASED [None]
  - BLOOD SODIUM INCREASED [None]
  - COMA [None]
  - CONFUSIONAL STATE [None]
  - DEHYDRATION [None]
  - DRUG TOXICITY [None]
  - EXTRAPYRAMIDAL DISORDER [None]
  - GASTROENTERITIS [None]
  - GENERAL PHYSICAL HEALTH DETERIORATION [None]
  - NEPHROGENIC DIABETES INSIPIDUS [None]
  - RENAL IMPAIRMENT [None]
  - TONGUE DRY [None]
  - URINE OSMOLARITY DECREASED [None]
